FAERS Safety Report 7828859-6 (Version None)
Quarter: 2011Q4

REPORT INFORMATION
  Report Type: 
  Country: None (occurrence: None)
  Receive Date: 20111020
  Receipt Date: 20111017
  Transmission Date: 20120403
  Serious: Yes (Other)
  Sender: FDA-Public Use
  Company Number: CHPA2011US14396

PATIENT
  Age: 62 Year
  Sex: Male

DRUGS (2)
  1. CONTROL PLP [Suspect]
     Indication: SMOKING CESSATION THERAPY
     Dosage: 21 MG, QD
     Route: 062
     Dates: start: 20110901, end: 20111016
  2. CONTROL PLP [Suspect]
     Dosage: 21 MG, BID
     Route: 062
     Dates: start: 20110920

REACTIONS (6)
  - RASH ERYTHEMATOUS [None]
  - PRURITUS [None]
  - RASH [None]
  - OVERDOSE [None]
  - TREATMENT NONCOMPLIANCE [None]
  - INAPPROPRIATE SCHEDULE OF DRUG ADMINISTRATION [None]
